FAERS Safety Report 7335131-X (Version None)
Quarter: 2011Q1

REPORT INFORMATION
  Report Type: 
  Country: None (occurrence: None)
  Receive Date: 20110307
  Receipt Date: 20101215
  Transmission Date: 20110831
  Serious: No
  Sender: FDA-Public Use
  Company Number: US-B.I. PHARMACEUTICALS,INC./RIDGEFIELD-2011-BP-04119BP

PATIENT

DRUGS (1)
  1. PRADAXA [Suspect]

REACTIONS (6)
  - ABDOMINAL PAIN UPPER [None]
  - ASTHENIA [None]
  - MYALGIA [None]
  - COUGH [None]
  - DIARRHOEA [None]
  - MELAENA [None]
